FAERS Safety Report 22525521 (Version 2)
Quarter: 2023Q2

REPORT INFORMATION
  Report Type: Spontaneous
  Country: US (occurrence: US)
  Receive Date: 20230606
  Receipt Date: 20230623
  Transmission Date: 20230722
  Serious: No
  Sender: FDA-Public Use
  Company Number: US-BAYER-2023A077538

PATIENT
  Age: 50 Year
  Sex: Male

DRUGS (1)
  1. KOGENATE FS [Suspect]
     Active Substance: ANTIHEMOPHILIC FACTOR, HUMAN RECOMBINANT
     Dosage: INFUSE 3840-4800 UNITS FOR BACK INJECTION WITHIN ONE HOUR PRIOR  TO PROCEDURE

REACTIONS (2)
  - Back pain [None]
  - Radiculopathy [None]

NARRATIVE: CASE EVENT DATE: 20230525
